FAERS Safety Report 7952023-3 (Version None)
Quarter: 2011Q4

REPORT INFORMATION
  Report Type: 
  Country: None (occurrence: None)
  Receive Date: 20111201
  Receipt Date: 20111118
  Transmission Date: 20120403
  Serious: No
  Sender: FDA-Public Use
  Company Number: US-B.I. PHARMACEUTICALS,INC./RIDGEFIELD-2011-BP-26591BP

PATIENT
  Sex: Male

DRUGS (2)
  1. FLOMAX [Suspect]
     Indication: NEPHROLITHIASIS
     Dosage: 0.4 MG
     Route: 048
     Dates: start: 20111028
  2. HYDROCODONE [Concomitant]
     Indication: BACK PAIN
     Route: 048

REACTIONS (5)
  - INSOMNIA [None]
  - SUICIDAL IDEATION [None]
  - FEELING ABNORMAL [None]
  - HYPERSENSITIVITY [None]
  - ANXIETY [None]
